FAERS Safety Report 8304931-1 (Version None)
Quarter: 2012Q2

REPORT INFORMATION
  Report Type: 
  Country: None (occurrence: None)
  Receive Date: 20120423
  Receipt Date: 20120417
  Transmission Date: 20120825
  Serious: Yes (Death)
  Sender: FDA-Public Use
  Company Number: SE-ROCHE-1060632

PATIENT
  Age: 72 Year
  Sex: Male

DRUGS (9)
  1. LUCENTIS [Suspect]
     Route: 050
     Dates: start: 20120221
  2. FUROSEMIDE [Concomitant]
  3. ASPIRIN [Concomitant]
  4. ENALAPRIL [Concomitant]
  5. LUCENTIS [Suspect]
     Indication: RETINAL VEIN OCCLUSION
     Route: 050
  6. METOPROLOL TARTRATE [Concomitant]
  7. AMLODIPINE [Concomitant]
  8. INSULIN [Concomitant]
  9. SIMVASTATIN [Concomitant]

REACTIONS (1)
  - CARDIAC FAILURE [None]
